FAERS Safety Report 12201701 (Version 1)
Quarter: 2016Q1

REPORT INFORMATION
  Report Type: Spontaneous
  Country: US (occurrence: US)
  Receive Date: 20160322
  Receipt Date: 20160322
  Transmission Date: 20160526
  Serious: No
  Sender: FDA-Public Use
  Company Number: US-SA-2015SA219421

PATIENT
  Sex: Male

DRUGS (2)
  1. NASACORT ALLERGY 24HR [Suspect]
     Active Substance: TRIAMCINOLONE ACETONIDE
     Indication: HYPERSENSITIVITY
     Dosage: DOSE AND DAILY DOSE 2 SPRAYS DAILY
     Route: 045
     Dates: start: 20151217, end: 20151219
  2. NASACORT ALLERGY 24HR [Suspect]
     Active Substance: TRIAMCINOLONE ACETONIDE
     Indication: RHINORRHOEA
     Dosage: DOSE AND DAILY DOSE 2 SPRAYS DAILY
     Route: 045
     Dates: start: 20151217, end: 20151219

REACTIONS (1)
  - Drug ineffective [Unknown]
